FAERS Safety Report 9221181 (Version 5)
Quarter: 2013Q2

REPORT INFORMATION
  Report Type: Spontaneous
  Country: US (occurrence: US)
  Receive Date: 20130410
  Receipt Date: 20130604
  Transmission Date: 20140414
  Serious: No
  Sender: FDA-Public Use
  Company Number: US-009507513-1304USA001210

PATIENT
  Age: 58 Year
  Sex: Female
  Weight: 65.76 kg

DRUGS (12)
  1. VICTRELIS [Suspect]
     Indication: HEPATITIS C
     Dosage: TAKE 4 CAPSULES BY MOUTH WITH MEALS
     Route: 048
     Dates: start: 20130329
  2. RIBAPAK [Suspect]
     Indication: HEPATITIS C
     Dosage: 800/DAY
     Dates: start: 20130301
  3. PEGASYS [Suspect]
     Indication: HEPATITIS C
     Dosage: UNK
     Dates: start: 20130301
  4. VITAMIN E [Concomitant]
  5. TESTOSTERONE [Concomitant]
  6. ESTRADIOL [Concomitant]
  7. GLUCO [Concomitant]
  8. BIOTIN [Concomitant]
  9. ASCORBIC ACID [Concomitant]
  10. CHONDROITIN SULFATE SODIUM (+) COLLAGEN (+) GLUCOSAMINE HYDROCHLORIDE [Concomitant]
  11. CALCIUM (UNSPECIFIED) (+) VITAMIN D (UNSPECIFIED) [Concomitant]
  12. VITAMINS (UNSPECIFIED) [Concomitant]

REACTIONS (24)
  - Rash [Recovering/Resolving]
  - Emotional disorder [Unknown]
  - Pain in extremity [Unknown]
  - Injection site erythema [Unknown]
  - Injection site swelling [Unknown]
  - Injection site pruritus [Unknown]
  - Injection site rash [Unknown]
  - Fatigue [Unknown]
  - Dysgeusia [Unknown]
  - Fatigue [Unknown]
  - Dry mouth [Unknown]
  - Fatigue [Unknown]
  - Headache [Unknown]
  - Dry mouth [Unknown]
  - Adverse event [Unknown]
  - Alopecia [Not Recovered/Not Resolved]
  - Dry mouth [Not Recovered/Not Resolved]
  - Fatigue [Not Recovered/Not Resolved]
  - Haemoglobin decreased [Not Recovered/Not Resolved]
  - Anaemia [Not Recovered/Not Resolved]
  - Leukopenia [Not Recovered/Not Resolved]
  - White blood cell count decreased [Not Recovered/Not Resolved]
  - Urticaria [Unknown]
  - Pruritus [Unknown]
